FAERS Safety Report 21280294 (Version 1)
Quarter: 2022Q3

REPORT INFORMATION
  Report Type: Spontaneous
  Country: US (occurrence: US)
  Receive Date: 20220901
  Receipt Date: 20220901
  Transmission Date: 20221027
  Serious: Yes (Death, Other)
  Sender: FDA-Public Use
  Company Number: US-SA-SAC20220830001274

PATIENT
  Age: 57 Year
  Sex: Male
  Weight: 73.1 kg

DRUGS (2)
  1. COPIKTRA [Suspect]
     Active Substance: DUVELISIB
     Indication: Tonsil cancer
     Dosage: UNK
  2. DOCETAXEL [Suspect]
     Active Substance: DOCETAXEL
     Indication: Tonsil cancer
     Dosage: UNKNOWN

REACTIONS (9)
  - Lung disorder [Fatal]
  - Acute respiratory failure [Fatal]
  - Atrial fibrillation [Fatal]
  - Pneumonia [Fatal]
  - Atrial flutter [Fatal]
  - Hypercapnia [Fatal]
  - Hypoxia [Fatal]
  - Dehydration [Fatal]
  - Pleural effusion [Fatal]

NARRATIVE: CASE EVENT DATE: 20220614
